FAERS Safety Report 5525648-2 (Version None)
Quarter: 2007Q4

REPORT INFORMATION
  Report Type: 
  Country: None (occurrence: None)
  Receive Date: 20071126
  Receipt Date: 20071113
  Transmission Date: 20080405
  Serious: Yes (Death)
  Sender: FDA-Public Use
  Company Number: FR-AMGEN-US250105

PATIENT
  Sex: Female

DRUGS (5)
  1. ENBREL [Suspect]
     Indication: RHEUMATOID ARTHRITIS
     Dosage: 4 TABLETS TOTAL WEEKLY
     Route: 048
     Dates: end: 20060101
  2. ENBREL [Suspect]
     Dosage: 3 TABLETS TOTAL WEEKLY
     Route: 048
     Dates: start: 20060101, end: 20070201
  3. ENBREL [Suspect]
     Route: 048
     Dates: start: 20070201, end: 20070701
  4. NOVATREX [Suspect]
  5. CORTANCYL [Concomitant]
     Route: 048
     Dates: start: 20070201

REACTIONS (2)
  - ALOPECIA [None]
  - CARDIAC DISORDER [None]
